FAERS Safety Report 23299286 (Version 5)
Quarter: 2025Q3

REPORT INFORMATION
  Report Type: Report from Study
  Country: US (occurrence: US)
  Receive Date: 20231215
  Receipt Date: 20250810
  Transmission Date: 20251020
  Serious: No
  Sender: ALEXION PHARMACEUTICALS
  Company Number: US-ALXN-A202307165

PATIENT
  Age: 77 Year
  Sex: Male

DRUGS (2)
  1. STRENSIQ [Suspect]
     Active Substance: ASFOTASE ALFA
     Indication: Hypophosphatasia
     Route: 065
  2. Testosterone co [Concomitant]
     Dosage: UNK, Q2W
     Route: 065

REACTIONS (16)
  - Depression [Unknown]
  - Burning sensation [Unknown]
  - Product complaint [Unknown]
  - Injection site reaction [Recovered/Resolved]
  - Injection site discharge [Unknown]
  - Injection site vesicles [Unknown]
  - Injection site bruising [Unknown]
  - Injection site pain [Recovered/Resolved]
  - Injection site erythema [Recovered/Resolved]
  - Injection site swelling [Unknown]
  - Injection site pruritus [Recovered/Resolved]
  - Injection site mass [Recovered/Resolved]
  - Injection site discolouration [Recovering/Resolving]
  - Vitamin D increased [Unknown]
  - Product administered at inappropriate site [Unknown]
  - Injection site scar [Recovering/Resolving]

NARRATIVE: CASE EVENT DATE: 20231107
